FAERS Safety Report 7475378-5 (Version None)
Quarter: 2011Q2

REPORT INFORMATION
  Report Type: 
  Country: None (occurrence: None)
  Receive Date: 20110512
  Receipt Date: 20110422
  Transmission Date: 20111010
  Serious: No
  Sender: FDA-Public Use
  Company Number: US-B.I. PHARMACEUTICALS,INC./RIDGEFIELD-2011-BP-08296BP

PATIENT
  Sex: Male

DRUGS (10)
  1. PRADAXA [Suspect]
     Indication: CARDIAC FIBRILLATION
  2. MINOCYCLINE [Concomitant]
  3. COREG [Concomitant]
     Indication: CARDIAC FAILURE
     Dosage: 50 MG
  4. PRADAXA [Suspect]
     Indication: ATRIAL FIBRILLATION
     Dosage: 300 MG
     Route: 048
  5. DIOVAN [Concomitant]
     Dosage: 40 MG
     Dates: start: 20110322
  6. NITROGLYCERIN [Concomitant]
  7. COREG [Concomitant]
     Dosage: 25 MG
     Dates: start: 20110309
  8. HYDROCHLOROTHIAZIDE [Concomitant]
  9. CLINDAMYCIN [Concomitant]
  10. DIOVAN [Concomitant]
     Indication: BLOOD PRESSURE
     Dosage: 80 MG

REACTIONS (2)
  - BLOOD PRESSURE DECREASED [None]
  - DIZZINESS [None]
